FAERS Safety Report 11003690 (Version 1)
Quarter: 2015Q2

REPORT INFORMATION
  Report Type: Spontaneous
  Country: US (occurrence: US)
  Receive Date: 20150409
  Receipt Date: 20150409
  Transmission Date: 20150821
  Serious: No
  Sender: FDA-Public Use
  Company Number: US-BIOGENIDEC-2015BI028145

PATIENT
  Age: 42 Year
  Sex: Female

DRUGS (2)
  1. AVONEX [Suspect]
     Active Substance: INTERFERON BETA-1A
     Indication: MULTIPLE SCLEROSIS
     Route: 030
     Dates: start: 20020101
  2. AVONEX [Suspect]
     Active Substance: INTERFERON BETA-1A
     Indication: MULTIPLE SCLEROSIS
     Route: 030

REACTIONS (7)
  - Tenderness [Not Recovered/Not Resolved]
  - Muscle tightness [Not Recovered/Not Resolved]
  - Injection site pain [Not Recovered/Not Resolved]
  - Injection site induration [Not Recovered/Not Resolved]
  - Pain in extremity [Not Recovered/Not Resolved]
  - Incorrect route of drug administration [Recovered/Resolved]
  - Injection site haemorrhage [Not Recovered/Not Resolved]

NARRATIVE: CASE EVENT DATE: 20150213
